FAERS Safety Report 12645226 (Version 1)
Quarter: 2016Q3

REPORT INFORMATION
  Report Type: Spontaneous
  Country: NL (occurrence: NL)
  Receive Date: 20160811
  Receipt Date: 20160811
  Transmission Date: 20161109
  Serious: Yes (Other)
  Sender: FDA-Public Use
  Company Number: NL-BIOGEN-2014BI060184

PATIENT
  Age: 71 Year
  Sex: Female
  Weight: 78 kg

DRUGS (1)
  1. TYSABRI [Suspect]
     Active Substance: NATALIZUMAB
     Indication: MULTIPLE SCLEROSIS
     Route: 042
     Dates: start: 20100401

REACTIONS (2)
  - Immune reconstitution inflammatory syndrome [Not Recovered/Not Resolved]
  - Progressive multifocal leukoencephalopathy [Recovered/Resolved]

NARRATIVE: CASE EVENT DATE: 20140616
